FAERS Safety Report 6770548-3 (Version None)
Quarter: 2010Q2

REPORT INFORMATION
  Report Type: 
  Country: None (occurrence: None)
  Receive Date: 20100615
  Receipt Date: 20100601
  Transmission Date: 20101027
  Serious: Yes (Hospitalization)
  Sender: FDA-Public Use
  Company Number: PHHO2008DE14932

PATIENT
  Sex: Male
  Weight: 75 kg

DRUGS (3)
  1. CERTICAN [Suspect]
     Indication: RENAL TRANSPLANT
     Dosage: 1.5 MG, BID
     Route: 048
     Dates: start: 20080827
  2. MYFORTIC [Suspect]
     Indication: RENAL TRANSPLANT
     Dosage: 360 MG, TID
     Dates: start: 20080513
  3. URBASON [Suspect]
     Indication: RENAL TRANSPLANT
     Dosage: 4 MG, QD

REACTIONS (1)
  - BONE MARROW OEDEMA [None]
